FAERS Safety Report 10267773 (Version 1)
Quarter: 2014Q2

REPORT INFORMATION
  Report Type: Spontaneous
  Country: US (occurrence: US)
  Receive Date: 20140630
  Receipt Date: 20140630
  Transmission Date: 20141212
  Serious: No
  Sender: FDA-Public Use
  Company Number: US-BAYER-2014-097565

PATIENT
  Age: 73 Year
  Sex: Male
  Weight: 102.4 kg

DRUGS (1)
  1. ALEVE GELCAPS [Suspect]
     Indication: ARTHRITIS
     Dosage: 2 DF, BID
     Route: 048

REACTIONS (1)
  - Extra dose administered [None]
